FAERS Safety Report 4833132-4 (Version None)
Quarter: 2005Q4

REPORT INFORMATION
  Report Type: 
  Country: None (occurrence: None)
  Receive Date: 20051117
  Receipt Date: 20051110
  Transmission Date: 20060501
  Serious: Yes (Hospitalization, Other)
  Sender: FDA-Public Use
  Company Number: 2005147791

PATIENT
  Age: 75 Year
  Sex: Female

DRUGS (13)
  1. CELEBREX [Suspect]
     Indication: ARTHRITIS
     Dosage: ORAL
     Route: 048
     Dates: start: 19990101
  2. BEXTRA [Suspect]
     Indication: ARTHRITIS
     Dosage: 20 MG (20 MG, 1 IN 1 D), ORAL
     Route: 048
     Dates: start: 20020101, end: 20050401
  3. LIPITOR [Suspect]
     Indication: BLOOD CHOLESTEROL INCREASED
     Dates: start: 20010101, end: 20010101
  4. ALPRAZOLAM [Suspect]
     Indication: ILL-DEFINED DISORDER
     Dates: start: 19990101
  5. WARFARIN SODIUM [Suspect]
     Indication: ILL-DEFINED DISORDER
     Dates: start: 19990601, end: 20051001
  6. POTASSIUM (POTASSIUM) [Concomitant]
  7. ALL OTHER THERAPEUTIC PRODUCTS (ALL OTHER THERAPEUTIC PRODUCTS) [Concomitant]
  8. ASPIRIN [Concomitant]
  9. LASIX [Concomitant]
  10. AVAPRO [Concomitant]
  11. VALSARTAN [Concomitant]
  12. IMDUR [Concomitant]
  13. QUININE SULFATE [Concomitant]

REACTIONS (14)
  - AORTIC ANEURYSM [None]
  - BALANCE DISORDER [None]
  - BLOOD CHOLESTEROL INCREASED [None]
  - CARDIAC FAILURE CONGESTIVE [None]
  - CONDITION AGGRAVATED [None]
  - CONTUSION [None]
  - DRUG INEFFECTIVE [None]
  - KNEE ARTHROPLASTY [None]
  - MUSCLE SPASMS [None]
  - PERIPHERAL ARTERY ANEURYSM [None]
  - SCIATICA [None]
  - SPINAL COLUMN STENOSIS [None]
  - VASCULAR BYPASS GRAFT [None]
  - WEIGHT DECREASED [None]
